FAERS Safety Report 7066895-0 (Version None)
Quarter: 2010Q4

REPORT INFORMATION
  Report Type: 
  Country: None (occurrence: None)
  Receive Date: 20101028
  Receipt Date: 20101019
  Transmission Date: 20110411
  Serious: Yes (Hospitalization)
  Sender: FDA-Public Use
  Company Number: US-BIOGENIDEC-2010BI032016

PATIENT
  Age: 59 Year
  Sex: Female
  Weight: 94 kg

DRUGS (1)
  1. TYSABRI [Suspect]
     Indication: MULTIPLE SCLEROSIS
     Route: 042
     Dates: start: 20061201

REACTIONS (6)
  - ARTHRALGIA [None]
  - GAIT DISTURBANCE [None]
  - NAUSEA [None]
  - OSTEOARTHRITIS [None]
  - SMALL INTESTINAL OBSTRUCTION [None]
  - VOMITING [None]
